FAERS Safety Report 6853110-3 (Version None)
Quarter: 2010Q3

REPORT INFORMATION
  Report Type: 
  Country: None (occurrence: None)
  Receive Date: 20100717
  Receipt Date: 20071130
  Transmission Date: 20110219
  Serious: No
  Sender: FDA-Public Use
  Company Number: US-PFIZER INC-2007103034

PATIENT
  Sex: Female
  Weight: 90.7 kg

DRUGS (3)
  1. CHANTIX [Suspect]
     Indication: SMOKING CESSATION THERAPY
     Route: 048
     Dates: start: 20070101
  2. CLARITIN [Concomitant]
     Indication: SINUS DISORDER
  3. DIOVAN HCT [Concomitant]
     Indication: HYPERTENSION

REACTIONS (1)
  - ABDOMINAL PAIN UPPER [None]
